FAERS Safety Report 5975220-5 (Version None)
Quarter: 2008Q4

REPORT INFORMATION
  Report Type: 
  Country: None (occurrence: None)
  Receive Date: 20081202
  Receipt Date: 20080626
  Transmission Date: 20090506
  Serious: No
  Sender: FDA-Public Use
  Company Number: US-BAYER-200812864BCC

PATIENT
  Age: 78 Year
  Sex: Female
  Weight: 73 kg

DRUGS (3)
  1. ALEVE (CAPLET) [Suspect]
     Indication: PAIN IN EXTREMITY
  2. LEVOTHYROXINE SODIUM [Concomitant]
  3. STOOL SOFTENER [Concomitant]

REACTIONS (6)
  - HYPERCHLORHYDRIA [None]
  - INFLUENZA LIKE ILLNESS [None]
  - MUSCULOSKELETAL DISCOMFORT [None]
  - PAIN [None]
  - VOMITING [None]
  - WHEEZING [None]
